FAERS Safety Report 10922815 (Version 1)
Quarter: 2015Q1

REPORT INFORMATION
  Report Type: Spontaneous
  Country: US (occurrence: US)
  Receive Date: 20150317
  Receipt Date: 20150317
  Transmission Date: 20150721
  Serious: Yes (Other)
  Sender: FDA-Public Use
  Company Number: US-CELGENE-USA-2015032343

PATIENT
  Age: 72 Year
  Sex: Female
  Weight: 52.66 kg

DRUGS (5)
  1. EXCEDRIN [Concomitant]
     Active Substance: ACETAMINOPHEN\ASPIRIN\CAFFEINE
     Indication: BACK PAIN
     Route: 065
  2. LINACLOTIDE [Concomitant]
     Active Substance: LINACLOTIDE
     Indication: IRRITABLE BOWEL SYNDROME
     Route: 065
  3. VIIBRYD [Concomitant]
     Active Substance: VILAZODONE HYDROCHLORIDE
     Indication: DEPRESSION
     Route: 065
  4. OTEZLA [Suspect]
     Active Substance: APREMILAST
     Indication: PSORIASIS
     Dosage: 60 MILLIGRAM
     Route: 048
     Dates: start: 20150226
  5. NITROSUN [Concomitant]
     Indication: CYSTITIS
     Route: 065
     Dates: start: 20150303, end: 20150310

REACTIONS (5)
  - Pain in jaw [Recovering/Resolving]
  - Headache [Recovering/Resolving]
  - Nausea [Not Recovered/Not Resolved]
  - Insomnia [Recovering/Resolving]
  - Diarrhoea [Not Recovered/Not Resolved]

NARRATIVE: CASE EVENT DATE: 20150226
